FAERS Safety Report 6980431-6 (Version None)
Quarter: 2010Q3

REPORT INFORMATION
  Report Type: 
  Country: None (occurrence: None)
  Receive Date: 20100914
  Receipt Date: 20100720
  Transmission Date: 20110219
  Serious: No
  Sender: FDA-Public Use
  Company Number: US-ABBOTT-10P-163-0659343-00

PATIENT

DRUGS (1)
  1. DEPAKOTE [Suspect]
     Indication: EPILEPSY

REACTIONS (3)
  - ANTICONVULSANT DRUG LEVEL INCREASED [None]
  - DIARRHOEA [None]
  - EPISTAXIS [None]
